FAERS Safety Report 7815571-2 (Version None)
Quarter: 2011Q4

REPORT INFORMATION
  Report Type: 
  Country: None (occurrence: None)
  Receive Date: 20111014
  Receipt Date: 20111006
  Transmission Date: 20120403
  Serious: Yes (Hospitalization)
  Sender: FDA-Public Use
  Company Number: AU-ABBOTT-08P-008-0460933-00

PATIENT
  Sex: Male

DRUGS (17)
  1. PERINDAPRIL [Concomitant]
     Indication: HYPERTENSION
  2. ASPIRIN [Concomitant]
     Indication: HYPERTENSION
  3. NORVASC [Concomitant]
     Indication: PRODUCT USED FOR UNKNOWN INDICATION
  4. LEUPROLIDE ACETATE [Suspect]
     Indication: PROSTATE CANCER
     Route: 050
     Dates: start: 20050512, end: 20050825
  5. CYTADREN [Concomitant]
     Indication: PRODUCT USED FOR UNKNOWN INDICATION
     Dates: start: 20070509, end: 20070821
  6. COSUDEX [Concomitant]
     Indication: PRODUCT USED FOR UNKNOWN INDICATION
     Dates: start: 20060901
  7. NEXIUM [Concomitant]
     Indication: PRODUCT USED FOR UNKNOWN INDICATION
  8. ZOMETA [Concomitant]
     Indication: PROSTATE CANCER
     Dosage: 4.0 MG PER 100  ML
     Route: 042
     Dates: start: 20050517, end: 20060824
  9. KETOCONAZOLE [Concomitant]
     Indication: PRODUCT USED FOR UNKNOWN INDICATION
     Dates: start: 20070821, end: 20080707
  10. AMLODIPINE [Concomitant]
     Indication: HYPERTENSION
  11. CORTISONE ACETATE [Concomitant]
     Indication: PRODUCT USED FOR UNKNOWN INDICATION
     Dates: start: 20070509
  12. CLOPIDOGREL [Concomitant]
     Indication: PRODUCT USED FOR UNKNOWN INDICATION
  13. LEUPROLIDE ACETATE [Suspect]
     Indication: PROSTATE CANCER METASTATIC
     Route: 050
     Dates: start: 20060920
  14. METOPROLOL TARTRATE [Concomitant]
     Indication: HYPERTENSION
  15. COSUDEX [Concomitant]
     Dates: start: 20080708
  16. PERINDOPRIL ERBUMINE [Concomitant]
     Indication: HYPERTENSION
     Dates: start: 20070901
  17. CORTATE [Concomitant]
     Indication: PRODUCT USED FOR UNKNOWN INDICATION

REACTIONS (7)
  - RESPIRATORY TRACT INFECTION [None]
  - ACUTE CORONARY SYNDROME [None]
  - CORONARY ARTERY STENOSIS [None]
  - MYOCARDIAL ISCHAEMIA [None]
  - ACUTE MYOCARDIAL INFARCTION [None]
  - TROPONIN INCREASED [None]
  - ARTERIOSCLEROSIS CORONARY ARTERY [None]
